FAERS Safety Report 6690829-1 (Version None)
Quarter: 2010Q2

REPORT INFORMATION
  Report Type: 
  Country: None (occurrence: None)
  Receive Date: 20100421
  Receipt Date: 20100413
  Transmission Date: 20101027
  Serious: Yes (Hospitalization)
  Sender: FDA-Public Use
  Company Number: US-WYE-H14578210

PATIENT
  Age: 75 Year
  Sex: Female

DRUGS (2)
  1. TORISEL [Suspect]
     Indication: OVARIAN CANCER
     Dosage: 25 MG OVER 30 MINUTES ON DAYS 1, 8, 15 AND 22
     Route: 042
     Dates: start: 20100301, end: 20100322
  2. BEVACIZUMAB [Suspect]
     Indication: OVARIAN CANCER
     Dosage: 10 MG/KG OVER 30 - 90 MINUTES ON DAYS 1 AND 15
     Route: 042
     Dates: start: 20100301, end: 20100315

REACTIONS (3)
  - DEHYDRATION [None]
  - HYPOKALAEMIA [None]
  - HYPOPHOSPHATAEMIA [None]
